FAERS Safety Report 9506023 (Version 1)
Quarter: 2013Q1

REPORT INFORMATION
  Report Type: Spontaneous
  Country: US (occurrence: None)
  Receive Date: 20130201
  Receipt Date: 20130201
  Transmission Date: 20140127
  Serious: No
  Sender: FDA-Public Use
  Company Number: US-010498

PATIENT
  Age: 65 Year
  Sex: Female
  Weight: 70.31 kg

DRUGS (5)
  1. PICOLAX [Suspect]
     Indication: BOWEL PREPARATION
     Dosage: 1 PKG MIXED WITH 5 OZ WATER AT 1600 HOURS AND ONE PACKET WITH 5 OZ WATER BETWEEN 2100-2200 HR PO)
     Route: 048
     Dates: start: 20121219
  2. SYNTHROID [Concomitant]
  3. TENORMIN [Concomitant]
  4. CRESTOR [Concomitant]
  5. LOMOTIL [Concomitant]

REACTIONS (2)
  - Diarrhoea [None]
  - Gastrointestinal pain [None]
